FAERS Safety Report 11015442 (Version 2)
Quarter: 2015Q2

REPORT INFORMATION
  Report Type: Spontaneous
  Country: US (occurrence: US)
  Receive Date: 20150412
  Receipt Date: 20150525
  Transmission Date: 20150821
  Serious: No
  Sender: FDA-Public Use
  Company Number: US-JNJFOC-20150101229

PATIENT
  Sex: Male
  Weight: 65.77 kg

DRUGS (2)
  1. SIMPONI [Suspect]
     Active Substance: GOLIMUMAB
     Indication: PSORIASIS
     Dosage: 4 MONTHS PRIOR TO THE DATE OF THIS REPORT
     Route: 058
     Dates: start: 2014
  2. SIMPONI [Suspect]
     Active Substance: GOLIMUMAB
     Indication: PSORIATIC ARTHROPATHY
     Dosage: 4 MONTHS PRIOR TO THE DATE OF THIS REPORT
     Route: 058
     Dates: start: 2014

REACTIONS (1)
  - Drug dose omission [Recovered/Resolved]
